FAERS Safety Report 11785533 (Version 1)
Quarter: 2015Q4

REPORT INFORMATION
  Report Type: Spontaneous
  Country: PH (occurrence: PH)
  Receive Date: 20151130
  Receipt Date: 20151130
  Transmission Date: 20160305
  Serious: Yes (Death)
  Sender: FDA-Public Use
  Company Number: PH-ASTELLAS-2015US036160

PATIENT
  Sex: Male

DRUGS (1)
  1. XTANDI [Suspect]
     Active Substance: ENZALUTAMIDE
     Indication: PROSTATE CANCER
     Route: 048

REACTIONS (4)
  - Off label use [Unknown]
  - Muscle twitching [Recovered/Resolved]
  - Multi-organ failure [Fatal]
  - Disease progression [Fatal]
